FAERS Safety Report 24274480 (Version 1)
Quarter: 2024Q3

REPORT INFORMATION
  Report Type: Spontaneous
  Country: CN (occurrence: CN)
  Receive Date: 20240902
  Receipt Date: 20240902
  Transmission Date: 20241017
  Serious: Yes (Hospitalization, Other)
  Sender: PFIZER
  Company Number: CN-PFIZER INC-PV202400112553

PATIENT
  Age: 72 Year
  Sex: Male
  Weight: 64 kg

DRUGS (4)
  1. EPIRUBICIN HYDROCHLORIDE [Suspect]
     Active Substance: EPIRUBICIN HYDROCHLORIDE
     Indication: Hepatic cancer
     Dosage: 40 MG, 1X/DAY
     Route: 013
     Dates: start: 20240816, end: 20240816
  2. OXALIPLATIN [Suspect]
     Active Substance: OXALIPLATIN
     Indication: Hepatic cancer
     Dosage: 100 MG, 1X/DAY
     Route: 013
     Dates: start: 20240816, end: 20240816
  3. IODINE [Concomitant]
     Active Substance: IODINE
     Indication: Hepatic cancer
     Dosage: 10 ML, 1X/DAY
     Route: 013
     Dates: start: 20240816, end: 20240816
  4. DEXTROSE [Concomitant]
     Active Substance: DEXTROSE\DEXTROSE MONOHYDRATE
     Indication: Hepatic cancer
     Dosage: 50 ML, 1X/DAY
     Route: 013
     Dates: start: 20240816, end: 20240816

REACTIONS (3)
  - Hepatic function abnormal [Recovering/Resolving]
  - Drug-induced liver injury [Recovering/Resolving]
  - Off label use [Unknown]

NARRATIVE: CASE EVENT DATE: 20240816
